FAERS Safety Report 21389543 (Version 2)
Quarter: 2022Q3

REPORT INFORMATION
  Report Type: Spontaneous
  Country: US (occurrence: US)
  Receive Date: 20220929
  Receipt Date: 20220930
  Transmission Date: 20221027
  Serious: No
  Sender: FDA-Public Use
  Company Number: US-BoehringerIngelheim-2022-BI-193970

PATIENT

DRUGS (1)
  1. DABIGATRAN [Suspect]
     Active Substance: DABIGATRAN
     Indication: Product used for unknown indication

REACTIONS (11)
  - Dyspepsia [Unknown]
  - Eructation [Unknown]
  - Faeces discoloured [Unknown]
  - Haematochezia [Unknown]
  - Throat irritation [Unknown]
  - Abdominal discomfort [Unknown]
  - Haematemesis [Unknown]
  - Chromaturia [Unknown]
  - Melaena [Unknown]
  - Oropharyngeal pain [Unknown]
  - Abdominal pain upper [Unknown]
